FAERS Safety Report 9091336 (Version 1)
Quarter: 2013Q1

REPORT INFORMATION
  Report Type: Spontaneous
  Country: GR (occurrence: GR)
  Receive Date: 20130131
  Receipt Date: 20130131
  Transmission Date: 20140127
  Serious: Yes (Other)
  Sender: FDA-Public Use
  Company Number: GR-JNJFOC-20121010817

PATIENT
  Age: 40 Year
  Sex: Male

DRUGS (3)
  1. INVEGA [Suspect]
     Indication: SCHIZOPHRENIA
     Route: 048
  2. SOLIAN [Concomitant]
     Dosage: SINCE THREE YEARS
     Route: 065
  3. AKINETON [Concomitant]
     Dosage: SINCE THREE YEARS
     Route: 065

REACTIONS (1)
  - Hyponatraemia [Recovered/Resolved]
